FAERS Safety Report 7380470-X (Version None)
Quarter: 2011Q1

REPORT INFORMATION
  Report Type: 
  Country: None (occurrence: None)
  Receive Date: 20110329
  Receipt Date: 20110323
  Transmission Date: 20110831
  Serious: Yes (Death, Hospitalization, Other)
  Sender: FDA-Public Use
  Company Number: JP-PFIZER INC-2010156243

PATIENT
  Age: 53 Year
  Sex: Male
  Weight: 48 kg

DRUGS (10)
  1. FENTANYL [Concomitant]
     Dosage: 2.1 MG, 1X/DAY
     Dates: start: 20101009, end: 20101023
  2. FENTANYL [Concomitant]
     Dosage: 4.2 MG, 1X/DAY
     Dates: start: 20101024
  3. POLARAMINE [Concomitant]
     Indication: PROPHYLAXIS
     Dosage: 5 MG, WEEKLY
     Route: 042
     Dates: start: 20101025
  4. GASTER [Concomitant]
     Dosage: 20 MG, 1X/DAY
     Route: 048
  5. FERRO-GRADUMET [Concomitant]
     Dosage: 1 TABLET, 2X/DAY
     Route: 048
     Dates: start: 20101027
  6. TEMSIROLIMUS [Suspect]
     Dosage: 20 MG, WEEKLY
     Route: 041
     Dates: start: 20101215
  7. OXYCONTIN [Concomitant]
     Dosage: 10 MG, 1X/DAY
  8. SENNOSIDE A [Concomitant]
     Dosage: 24 MG, 1X/DAY
     Route: 048
  9. LENDORMIN [Concomitant]
     Dosage: 0.25 MG, 1X/DAY
     Route: 048
  10. TEMSIROLIMUS [Suspect]
     Indication: RENAL CELL CARCINOMA
     Dosage: 25 MG, WEEKLY
     Route: 041
     Dates: start: 20101025, end: 20101115

REACTIONS (4)
  - PNEUMOTHORAX [None]
  - DISEASE PROGRESSION [None]
  - RENAL CELL CARCINOMA [None]
  - CEREBRAL INFARCTION [None]
